FAERS Safety Report 20065692 (Version 1)
Quarter: 2021Q4

REPORT INFORMATION
  Report Type: Spontaneous
  Country: BR (occurrence: BR)
  Receive Date: 20211113
  Receipt Date: 20211113
  Transmission Date: 20220303
  Serious: Yes (Hospitalization, Other)
  Sender: FDA-Public Use
  Company Number: BR-ORGANON-O2111BRA001491

PATIENT
  Sex: Female

DRUGS (6)
  1. LOSARTAN POTASSIUM [Suspect]
     Active Substance: LOSARTAN POTASSIUM
     Dosage: UNK
  2. CARVEDILOL [Concomitant]
     Active Substance: CARVEDILOL
     Dosage: UNK
  3. HYDRALAZINE HYDROCHLORIDE [Concomitant]
     Active Substance: HYDRALAZINE HYDROCHLORIDE
     Dosage: UNK
  4. COSENTYX [Concomitant]
     Active Substance: SECUKINUMAB
     Dosage: UNK
     Dates: start: 201811
  5. ATORVASTATINA [ATORVASTATIN CALCIUM] [Concomitant]
     Dosage: UNK
  6. HYDRALAZINE HYDROCHLORIDE [Concomitant]
     Active Substance: HYDRALAZINE HYDROCHLORIDE
     Dosage: UNK
     Dates: start: 20201126

REACTIONS (19)
  - Infarction [Unknown]
  - Pneumonia [Unknown]
  - Confusional state [Unknown]
  - Hypersensitivity [Recovered/Resolved]
  - Immunodeficiency [Unknown]
  - Pruritus [Unknown]
  - Chest discomfort [Unknown]
  - Retching [Unknown]
  - Eructation [Unknown]
  - Head discomfort [Unknown]
  - Malaise [Unknown]
  - Amnesia [Unknown]
  - Ligament sprain [Recovered/Resolved]
  - Breast pain [Recovered/Resolved]
  - Rash [Unknown]
  - Vomiting [Recovered/Resolved]
  - Fatigue [Unknown]
  - Gait disturbance [Unknown]
  - Pain in extremity [Unknown]

NARRATIVE: CASE EVENT DATE: 20200101
